FAERS Safety Report 18610697 (Version 3)
Quarter: 2021Q1

REPORT INFORMATION
  Report Type: Spontaneous
  Country: US (occurrence: US)
  Receive Date: 20201214
  Receipt Date: 20210323
  Transmission Date: 20210419
  Serious: Yes (Death, Other)
  Sender: FDA-Public Use
  Company Number: US-BRISTOL-MYERS SQUIBB COMPANY-BMS-2020-106312

PATIENT
  Sex: Male

DRUGS (2)
  1. OPDIVO [Suspect]
     Active Substance: NIVOLUMAB
     Indication: METASTATIC GASTRIC CANCER
     Dosage: 181 MILLIGRAM, Q3WK
     Route: 042
     Dates: start: 20200813
  2. YERVOY [Suspect]
     Active Substance: IPILIMUMAB
     Indication: METASTATIC GASTRIC CANCER
     Dosage: 81 MILLIGRAM, Q3WK
     Route: 042
     Dates: start: 20200813

REACTIONS (2)
  - Malignant neoplasm progression [Fatal]
  - Intentional product use issue [Unknown]
